FAERS Safety Report 8193795-5 (Version None)
Quarter: 2012Q1

REPORT INFORMATION
  Report Type: 
  Country: None (occurrence: None)
  Receive Date: 20120308
  Receipt Date: 20120229
  Transmission Date: 20120608
  Serious: Yes (Other)
  Sender: FDA-Public Use
  Company Number: JP-UCBSA-052480

PATIENT
  Age: 21 Year
  Sex: Female
  Weight: 50 kg

DRUGS (3)
  1. PHENYTOIN SODIUM [Concomitant]
     Indication: PARTIAL SEIZURES WITH SECONDARY GENERALISATION
     Dosage: DAILY DOSE: 250 MG
     Route: 042
  2. KEPPRA [Suspect]
     Indication: PARTIAL SEIZURES WITH SECONDARY GENERALISATION
     Route: 048
     Dates: start: 20111108, end: 20111121
  3. DIPRIVAN [Concomitant]
     Indication: PARTIAL SEIZURES WITH SECONDARY GENERALISATION
     Dosage: DAILY DOSE: 500 ML
     Route: 042
     Dates: end: 20111117

REACTIONS (1)
  - PANCREATIC ENZYMES INCREASED [None]
